FAERS Safety Report 9001839 (Version 2)
Quarter: 2013Q1

REPORT INFORMATION
  Report Type: Report from Study
  Country: JP (occurrence: JP)
  Receive Date: 20130107
  Receipt Date: 20130227
  Transmission Date: 20140127
  Serious: Yes (Death, Other)
  Sender: FDA-Public Use
  Company Number: JP-ROCHE-1174865

PATIENT
  Age: 82 Year
  Sex: Male

DRUGS (25)
  1. TOCILIZUMAB [Suspect]
     Indication: RHEUMATOID ARTHRITIS
     Route: 041
     Dates: start: 20090615, end: 20091002
  2. TOCILIZUMAB [Suspect]
     Route: 041
     Dates: start: 20091030, end: 20091127
  3. TOCILIZUMAB [Suspect]
     Route: 041
     Dates: start: 20100412, end: 20100709
  4. TOCILIZUMAB [Suspect]
     Route: 041
     Dates: start: 20100924, end: 20110318
  5. TOCILIZUMAB [Suspect]
     Route: 041
     Dates: start: 20110318, end: 20110318
  6. TOCILIZUMAB [Suspect]
     Route: 041
     Dates: start: 20110422, end: 20110527
  7. TOCILIZUMAB [Suspect]
     Route: 041
     Dates: start: 20110708, end: 20110708
  8. TOCILIZUMAB [Suspect]
     Route: 041
     Dates: start: 20110921, end: 20110921
  9. PREDNISOLONE [Suspect]
     Indication: RHEUMATOID ARTHRITIS
     Route: 048
     Dates: start: 200903, end: 20090614
  10. PREDNISOLONE [Suspect]
     Route: 048
     Dates: start: 20090615, end: 20090625
  11. PREDNISOLONE [Suspect]
     Route: 048
     Dates: start: 20090626, end: 20090709
  12. PREDNISOLONE [Suspect]
     Route: 048
     Dates: start: 20090710, end: 20090806
  13. PREDNISOLONE [Suspect]
     Route: 048
     Dates: start: 20090807, end: 20091001
  14. PREDNISOLONE [Suspect]
     Route: 048
     Dates: start: 20091002, end: 20091029
  15. PREDNISOLONE [Suspect]
     Route: 048
     Dates: start: 20091030, end: 20091126
  16. PREDNISOLONE [Suspect]
     Route: 048
     Dates: start: 20091127
  17. PREDNISOLONE [Suspect]
     Route: 048
     Dates: start: 20100924, end: 20101223
  18. PREDNISOLONE [Suspect]
     Route: 048
     Dates: start: 20101224, end: 20110203
  19. PREDNISOLONE [Suspect]
     Route: 048
     Dates: start: 20110204, end: 20110317
  20. PREDNISOLONE [Suspect]
     Route: 048
     Dates: start: 20110318, end: 20111015
  21. ITRIZOLE [Concomitant]
     Route: 048
     Dates: start: 20110926, end: 20111015
  22. ITRIZOLE [Concomitant]
     Route: 048
  23. CALONAL [Concomitant]
     Indication: PROPHYLAXIS
     Dosage: 1200- 400 MG
     Route: 048
     Dates: end: 20111015
  24. COLCHICINE [Concomitant]
     Route: 048
     Dates: start: 20110922, end: 20111015
  25. AZULFIDINE [Concomitant]
     Indication: RHEUMATOID ARTHRITIS
     Route: 048
     Dates: start: 2009, end: 20111015

REACTIONS (5)
  - Pneumonia [Fatal]
  - Acute respiratory failure [Recovering/Resolving]
  - Small intestinal haemorrhage [Fatal]
  - Pleural effusion [Fatal]
  - Pneumonia aspiration [Fatal]
